FAERS Safety Report 8766707 (Version 6)
Quarter: 2013Q3

REPORT INFORMATION
  Report Type: Report from Study
  Country: HU (occurrence: HU)
  Receive Date: 20120904
  Receipt Date: 20130819
  Transmission Date: 20140515
  Serious: Yes (Hospitalization)
  Sender: FDA-Public Use
  Company Number: HU-B.I. PHARMACEUTICALS,INC./RIDGEFIELD-2012-RD-00541AP

PATIENT
  Age: 70 Year
  Sex: Male
  Weight: 80 kg

DRUGS (7)
  1. TIOTROPIUM BROMIDE [Suspect]
     Indication: CHRONIC OBSTRUCTIVE PULMONARY DISEASE
     Dosage: 2.5 MCG
     Route: 055
     Dates: start: 20120803, end: 20120826
  2. TIOTROPIUM BROMIDE [Suspect]
     Indication: CHRONIC OBSTRUCTIVE PULMONARY DISEASE
     Dosage: 2.5 MCG
     Route: 055
     Dates: start: 20120803, end: 20120826
  3. TRIAL PROCEDURE [Suspect]
     Indication: CHRONIC OBSTRUCTIVE PULMONARY DISEASE
  4. ASPIRIN [Concomitant]
     Indication: CEREBROVASCULAR ACCIDENT PROPHYLAXIS
     Dosage: 100 MG
     Route: 048
  5. PIRABENE [Concomitant]
     Indication: CEREBROVASCULAR ACCIDENT
     Dosage: 1600 MG
     Route: 048
  6. BETAREVIN [Concomitant]
     Indication: CEREBROVASCULAR ACCIDENT
     Dosage: 32 MG
     Route: 048
  7. ATORVO [Concomitant]
     Indication: HYPERLIPIDAEMIA

REACTIONS (1)
  - Cerebrovascular accident [Recovered/Resolved with Sequelae]
